FAERS Safety Report 17718487 (Version 3)
Quarter: 2020Q2

REPORT INFORMATION
  Report Type: Spontaneous
  Country: JP (occurrence: JP)
  Receive Date: 20200428
  Receipt Date: 20200603
  Transmission Date: 20200714
  Serious: Yes (Death, Hospitalization)
  Sender: FDA-Public Use
  Company Number: JP-JNJFOC-20200431537

PATIENT
  Age: 9 Decade
  Sex: Female

DRUGS (3)
  1. TREMFYA [Suspect]
     Active Substance: GUSELKUMAB
     Indication: PSORIASIS
     Dosage: EVERY 4-8 WEEKS
     Route: 058
     Dates: start: 20190802, end: 201912
  2. TREMFYA [Suspect]
     Active Substance: GUSELKUMAB
  3. TREMFYA [Suspect]
     Active Substance: GUSELKUMAB

REACTIONS (1)
  - Myocardial ischaemia [Fatal]

NARRATIVE: CASE EVENT DATE: 2020
